FAERS Safety Report 12366507 (Version 1)
Quarter: 2016Q2

REPORT INFORMATION
  Report Type: Report from Study
  Country: BR (occurrence: BR)
  Receive Date: 20160513
  Receipt Date: 20160513
  Transmission Date: 20160815
  Serious: Yes (Other)
  Sender: FDA-Public Use
  Company Number: BR-BAYER-2016-086674

PATIENT
  Age: 39 Year
  Sex: Female

DRUGS (1)
  1. YAZ [Suspect]
     Active Substance: DROSPIRENONE\ETHINYL ESTRADIOL
     Indication: ENDOMETRIOSIS
     Dosage: UNK UNK, CONT
     Route: 048
     Dates: start: 201105

REACTIONS (4)
  - Off label use [None]
  - Off label use [None]
  - Pain [None]
  - Laparoscopic surgery [None]

NARRATIVE: CASE EVENT DATE: 201105
